FAERS Safety Report 19167274 (Version 2)
Quarter: 2021Q2

REPORT INFORMATION
  Report Type: Spontaneous
  Country: US (occurrence: US)
  Receive Date: 20210422
  Receipt Date: 20210602
  Transmission Date: 20210717
  Serious: Yes (Other)
  Sender: FDA-Public Use
  Company Number: US-APOTEX-2021AP009242

PATIENT
  Sex: Male

DRUGS (4)
  1. TRAZODONE [Suspect]
     Active Substance: TRAZODONE HYDROCHLORIDE
     Indication: PRODUCT USED FOR UNKNOWN INDICATION
     Dosage: UNK
     Route: 065
  2. XTANDI [Concomitant]
     Active Substance: ENZALUTAMIDE
     Indication: PROSTATE CANCER
     Dosage: 160 MILLIGRAM, Q.AM (4 CAPSULES IN THE MORNING)
     Route: 048
     Dates: start: 201911
  3. XTANDI [Concomitant]
     Active Substance: ENZALUTAMIDE
     Dosage: 80 MILLIGRAM, BID (2 CAPSULES IN THE MORNING AND 2 AT NIGHT)
     Route: 048
     Dates: start: 201912
  4. AMLODIPINE [Interacting]
     Active Substance: AMLODIPINE BESYLATE
     Indication: PRODUCT USED FOR UNKNOWN INDICATION
     Dosage: UNK
     Route: 065

REACTIONS (3)
  - Blood pressure abnormal [Unknown]
  - Blood cholesterol abnormal [Unknown]
  - Drug interaction [Unknown]
